FAERS Safety Report 5775215-0 (Version None)
Quarter: 2008Q2

REPORT INFORMATION
  Report Type: 
  Country: None (occurrence: None)
  Receive Date: 20080617
  Receipt Date: 20080605
  Transmission Date: 20081010
  Serious: Yes (Other)
  Sender: FDA-Public Use
  Company Number: B0523339A

PATIENT

DRUGS (5)
  1. MELPHALAN [Suspect]
     Indication: BONE MARROW TRANSPLANT
     Dosage: 140MGM2 CYCLIC
     Route: 065
  2. CARMUSTINE [Suspect]
     Indication: BONE MARROW TRANSPLANT
     Dosage: 300MGM2 CYCLIC
     Route: 065
  3. ETOPOSIDE [Suspect]
     Indication: BONE MARROW TRANSPLANT
     Dosage: 200MGM2 TWICE PER DAY
     Route: 065
  4. CYTARABINE [Suspect]
     Indication: BONE MARROW TRANSPLANT
     Dosage: 200MGM2 TWICE PER DAY
     Route: 065
  5. ANTHRACYCLINES [Concomitant]

REACTIONS (3)
  - MYELODYSPLASTIC SYNDROME [None]
  - PANCYTOPENIA [None]
  - REFRACTORY CYTOPENIA WITH MULTILINEAGE DYSPLASIA [None]
